FAERS Safety Report 6110947-6 (Version None)
Quarter: 2009Q1

REPORT INFORMATION
  Report Type: 
  Country: None (occurrence: None)
  Receive Date: 20090311
  Receipt Date: 20090305
  Transmission Date: 20090719
  Serious: Yes (Hospitalization)
  Sender: FDA-Public Use
  Company Number: FR-BRISTOL-MYERS SQUIBB COMPANY-14536338

PATIENT
  Age: 82 Year
  Sex: Female

DRUGS (6)
  1. FOZITEC TABS 20 MG [Suspect]
     Indication: HYPERTENSION
     Route: 048
  2. DETENSIEL [Suspect]
     Indication: HYPERTENSION
     Dosage: FORM=TABLET
     Route: 048
  3. VASTAREL [Suspect]
     Indication: ANGINA PECTORIS
     Dosage: DF=20MG TAB
     Route: 048
  4. MOPRAL [Suspect]
     Indication: OESOPHAGITIS
     Dosage: FORM = TABS
     Route: 048
  5. CLONIDINE HCL [Suspect]
     Indication: HYPERTENSION
     Dosage: FORM = 0.15MG TAB
     Route: 048
  6. AMLOR [Suspect]
     Indication: HYPERTENSION
     Dosage: FORM =CAPSULE
     Route: 048

REACTIONS (1)
  - ANAEMIA [None]
